FAERS Safety Report 5919243-0 (Version None)
Quarter: 2008Q4

REPORT INFORMATION
  Report Type: 
  Country: None (occurrence: None)
  Receive Date: 20081014
  Receipt Date: 20081014
  Transmission Date: 20090506
  Serious: No
  Sender: FDA-Public Use
  Company Number: None

PATIENT
  Age: 45 Year
  Sex: Female
  Weight: 90.7194 kg

DRUGS (1)
  1. SINGULAIR [Suspect]
     Indication: RHINITIS ALLERGIC
     Dosage: 10 MG ONCE DAILY PO
     Route: 048
     Dates: start: 20051001, end: 20080731

REACTIONS (3)
  - DEPRESSION [None]
  - IRRITABILITY [None]
  - MOOD ALTERED [None]
